FAERS Safety Report 20208948 (Version 3)
Quarter: 2022Q1

REPORT INFORMATION
  Report Type: Report from Study
  Country: US (occurrence: None)
  Receive Date: 20211220
  Receipt Date: 20220304
  Transmission Date: 20220423
  Serious: Yes (Hospitalization)
  Sender: FDA-Public Use
  Company Number: US-Eisai Medical Research-EC-2021-105119

PATIENT
  Age: 33 Year
  Sex: Female

DRUGS (3)
  1. LENVIMA [Suspect]
     Active Substance: LENVATINIB
     Indication: Ovarian cancer
     Route: 048
     Dates: start: 20211111, end: 20211213
  2. LENVIMA [Suspect]
     Active Substance: LENVATINIB
     Route: 048
     Dates: end: 20220215
  3. LENVIMA [Suspect]
     Active Substance: LENVATINIB
     Route: 048
     Dates: start: 20220216, end: 20220224

REACTIONS (2)
  - Fistula [Unknown]
  - Haemorrhage [Unknown]

NARRATIVE: CASE EVENT DATE: 20211213
